FAERS Safety Report 9167566 (Version 3)
Quarter: 2013Q2

REPORT INFORMATION
  Report Type: Spontaneous
  Country: FR (occurrence: FR)
  Receive Date: 20130318
  Receipt Date: 20130412
  Transmission Date: 20140414
  Serious: Yes (Death, Other)
  Sender: FDA-Public Use
  Company Number: FR-JNJFOC-20130304047

PATIENT
  Age: 31 Year
  Sex: Female
  Weight: 97 kg

DRUGS (6)
  1. REMICADE [Suspect]
     Indication: ANKYLOSING SPONDYLITIS
     Dosage: LAST INFUSION
     Route: 042
     Dates: start: 20130204
  2. REMICADE [Suspect]
     Indication: ANKYLOSING SPONDYLITIS
     Route: 042
     Dates: start: 20120820
  3. REMICADE [Suspect]
     Indication: ANKYLOSING SPONDYLITIS
     Dosage: 1ST INFUSION
     Route: 042
     Dates: start: 20120319
  4. DICLOFENAC [Concomitant]
     Indication: ANKYLOSING SPONDYLITIS
     Route: 048
     Dates: start: 2007
  5. LAMALINE [Concomitant]
     Indication: ANKYLOSING SPONDYLITIS
     Dosage: FREQUENCY: AS NECESSARY
     Route: 048
     Dates: start: 20120820
  6. TRINORDIOL [Concomitant]
     Indication: CONTRACEPTION
     Route: 048

REACTIONS (2)
  - Death [Fatal]
  - Hypertension [Unknown]
